FAERS Safety Report 12653628 (Version 7)
Quarter: 2016Q4

REPORT INFORMATION
  Report Type: Report from Study
  Country: US (occurrence: US)
  Receive Date: 20160815
  Receipt Date: 20161012
  Transmission Date: 20170207
  Serious: Yes (Other)
  Sender: FDA-Public Use
  Company Number: US-AMGEN-USASP2016102956

PATIENT
  Age: 72 Year
  Sex: Female

DRUGS (9)
  1. PREDNISONE. [Suspect]
     Active Substance: PREDNISONE
     Indication: PRODUCT USED FOR UNKNOWN INDICATION
     Dosage: 40 MG, QD
     Route: 065
  2. PREDNISONE. [Suspect]
     Active Substance: PREDNISONE
     Dosage: 10 MG, UNK
     Route: 065
  3. ENBREL [Suspect]
     Active Substance: ETANERCEPT
     Dosage: UNK
     Route: 065
  4. ENBREL [Suspect]
     Active Substance: ETANERCEPT
     Indication: RHEUMATOID ARTHRITIS
     Dosage: 50 MG, WEEKLY
     Route: 065
     Dates: start: 2016
  5. PREDNISONE. [Suspect]
     Active Substance: PREDNISONE
     Dosage: 7.5 MG, UNK
     Route: 065
  6. PLAQUENIL [Concomitant]
     Active Substance: HYDROXYCHLOROQUINE SULFATE
  7. PREDNISONE. [Suspect]
     Active Substance: PREDNISONE
     Dosage: 5 MG, QD
     Route: 065
  8. SULFASALAZINE. [Concomitant]
     Active Substance: SULFASALAZINE
     Dosage: UNK
  9. PREDNISONE. [Suspect]
     Active Substance: PREDNISONE
     Dosage: 6 UNK, UNK
     Route: 065
     Dates: start: 2016

REACTIONS (17)
  - Pain [Unknown]
  - Animal bite [Unknown]
  - Peripheral swelling [Unknown]
  - Thrombosis [Unknown]
  - Blepharospasm [Unknown]
  - Arthritis [Unknown]
  - Pyrexia [Unknown]
  - Joint swelling [Unknown]
  - Memory impairment [Unknown]
  - Fatigue [Unknown]
  - Arthralgia [Unknown]
  - Arthropathy [Unknown]
  - Laboratory test abnormal [Unknown]
  - Eye disorder [Unknown]
  - Pain in extremity [Unknown]
  - Visual acuity reduced [Unknown]
  - Asthenia [Unknown]

NARRATIVE: CASE EVENT DATE: 2016
